FAERS Safety Report 5545209-9 (Version None)
Quarter: 2007Q4

REPORT INFORMATION
  Report Type: 
  Country: None (occurrence: None)
  Receive Date: 20071123
  Receipt Date: 20070228
  Transmission Date: 20080405
  Serious: Yes (Other)
  Sender: FDA-Public Use
  Company Number: US-JNJFOC-20070300194

PATIENT
  Age: 30 Year
  Sex: Male
  Weight: 31.2982 kg

DRUGS (2)
  1. LEVAQUIN [Suspect]
     Indication: CYSTITIS
     Dosage: , 1 IN 1 DAY, ORAL
     Route: 048
     Dates: start: 20060501, end: 20060501
  2. MULTIPLE MEDICATIONS (ALL OTHER THERAPEUTIC PRODUCTS) UNSPECIFIED [Concomitant]

REACTIONS (1)
  - HALLUCINATION [None]
